FAERS Safety Report 12351908 (Version 1)
Quarter: 2016Q2

REPORT INFORMATION
  Report Type: Spontaneous
  Country: CA (occurrence: CA)
  Receive Date: 20160510
  Receipt Date: 20160510
  Transmission Date: 20160815
  Serious: Yes (Other)
  Sender: FDA-Public Use
  Company Number: CA-009507513-1605CAN004884

PATIENT

DRUGS (13)
  1. PREDNISONE. [Concomitant]
     Active Substance: PREDNISONE
     Indication: PRODUCT USED FOR UNKNOWN INDICATION
  2. PULMICORT TURBUHALER [Concomitant]
     Active Substance: BUDESONIDE
     Indication: PRODUCT USED FOR UNKNOWN INDICATION
  3. TIOTROPIUM BROMIDE [Concomitant]
     Active Substance: TIOTROPIUM BROMIDE
     Indication: PRODUCT USED FOR UNKNOWN INDICATION
  4. TRIAMTERENE. [Concomitant]
     Active Substance: TRIAMTERENE
     Indication: PRODUCT USED FOR UNKNOWN INDICATION
     Dosage: 1 DF, QD
  5. INFLUENZA VIRUS VACCINE (UNSPECIFIED) [Suspect]
     Active Substance: INFLUENZA VIRUS VACCINE
     Indication: PROPHYLAXIS
     Dosage: UNK
  6. HYDROCHLOROTHIAZIDE. [Concomitant]
     Active Substance: HYDROCHLOROTHIAZIDE
     Dosage: 12.5 MG, QD
  7. ADVAIR HFA [Suspect]
     Active Substance: FLUTICASONE PROPIONATE\SALMETEROL XINAFOATE
     Indication: CHRONIC OBSTRUCTIVE PULMONARY DISEASE
     Dosage: 1 DF, BID
  8. ADVAIR HFA [Suspect]
     Active Substance: FLUTICASONE PROPIONATE\SALMETEROL XINAFOATE
     Indication: ASTHMA
     Dosage: 1 DF, BID
  9. CHOLECALCIFEROL [Concomitant]
     Active Substance: CHOLECALCIFEROL
     Indication: PRODUCT USED FOR UNKNOWN INDICATION
  10. DESLORATADINE. [Suspect]
     Active Substance: DESLORATADINE
     Indication: MULTIPLE ALLERGIES
     Dosage: UNKNOWN
     Route: 065
  11. MOXIFLOXACIN HYDROCHLORIDE. [Suspect]
     Active Substance: MOXIFLOXACIN HYDROCHLORIDE
     Indication: PRODUCT USED FOR UNKNOWN INDICATION
  12. HYDROCHLOROTHIAZIDE. [Concomitant]
     Active Substance: HYDROCHLOROTHIAZIDE
     Indication: PRODUCT USED FOR UNKNOWN INDICATION
     Dosage: 1 DF, QD
     Route: 048
  13. VENTOLIN [Concomitant]
     Active Substance: ALBUTEROL SULFATE
     Indication: PRODUCT USED FOR UNKNOWN INDICATION
     Dosage: 2 DF, UNK

REACTIONS (33)
  - Condition aggravated [Not Recovered/Not Resolved]
  - Oropharyngeal pain [Not Recovered/Not Resolved]
  - Peripheral arterial occlusive disease [Not Recovered/Not Resolved]
  - Rhinalgia [Not Recovered/Not Resolved]
  - Abdominal pain upper [Not Recovered/Not Resolved]
  - Chronic obstructive pulmonary disease [Not Recovered/Not Resolved]
  - Osteoporosis [Not Recovered/Not Resolved]
  - Pharyngeal disorder [Not Recovered/Not Resolved]
  - Productive cough [Not Recovered/Not Resolved]
  - Cough [Not Recovered/Not Resolved]
  - Local swelling [Not Recovered/Not Resolved]
  - Vasodilatation [Not Recovered/Not Resolved]
  - Drug ineffective [Not Recovered/Not Resolved]
  - Foot deformity [Not Recovered/Not Resolved]
  - Limb discomfort [Not Recovered/Not Resolved]
  - Multiple allergies [Not Recovered/Not Resolved]
  - Treatment noncompliance [Not Recovered/Not Resolved]
  - Blindness transient [Not Recovered/Not Resolved]
  - Gastrointestinal disorder [Not Recovered/Not Resolved]
  - Nasopharyngitis [Not Recovered/Not Resolved]
  - Epistaxis [Not Recovered/Not Resolved]
  - Gait disturbance [Not Recovered/Not Resolved]
  - Inner ear disorder [Not Recovered/Not Resolved]
  - Muscle spasms [Not Recovered/Not Resolved]
  - Pneumonia [Not Recovered/Not Resolved]
  - Foot prosthesis user [Not Recovered/Not Resolved]
  - Loss of consciousness [Not Recovered/Not Resolved]
  - Pruritus [Not Recovered/Not Resolved]
  - Contusion [Not Recovered/Not Resolved]
  - Rhinorrhoea [Not Recovered/Not Resolved]
  - Wrong technique in product usage process [Not Recovered/Not Resolved]
  - Dyspnoea [Not Recovered/Not Resolved]
  - Fatigue [Not Recovered/Not Resolved]
